FAERS Safety Report 7131368-3 (Version None)
Quarter: 2010Q4

REPORT INFORMATION
  Report Type: 
  Country: None (occurrence: None)
  Receive Date: 20101124
  Receipt Date: 20101124
  Transmission Date: 20110411
  Serious: Yes (Hospitalization)
  Sender: FDA-Public Use
  Company Number: None

PATIENT
  Age: 87 Year
  Sex: Female
  Weight: 69.8 kg

DRUGS (1)
  1. WARFARIN 2 MG [Suspect]
     Indication: ATRIAL FIBRILLATION

REACTIONS (2)
  - IMPAIRED HEALING [None]
  - SKIN NECROSIS [None]
